FAERS Safety Report 15017799 (Version 2)
Quarter: 2018Q2

REPORT INFORMATION
  Report Type: Spontaneous
  Country: US (occurrence: US)
  Receive Date: 20180615
  Receipt Date: 20180615
  Transmission Date: 20180711
  Serious: No
  Sender: FDA-Public Use
  Company Number: US-PRINSTON PHARMACEUTICAL INC.-2018PRN00208

PATIENT
  Sex: Female

DRUGS (2)
  1. DULOXETINE. [Suspect]
     Active Substance: DULOXETINE
     Dosage: UNK
  2. DULOXETINE. [Suspect]
     Active Substance: DULOXETINE
     Indication: FIBROMYALGIA
     Dosage: UNK
     Dates: start: 201802

REACTIONS (4)
  - Paraesthesia [Not Recovered/Not Resolved]
  - Feeling abnormal [Unknown]
  - Product substitution issue [Unknown]
  - Reaction to excipient [Unknown]

NARRATIVE: CASE EVENT DATE: 2018
